FAERS Safety Report 25918096 (Version 1)
Quarter: 2025Q4

REPORT INFORMATION
  Report Type: Spontaneous
  Country: JP (occurrence: JP)
  Receive Date: 20251014
  Receipt Date: 20251014
  Transmission Date: 20260119
  Serious: Yes (Death, Life-Threatening)
  Sender: STRIDES
  Company Number: None

PATIENT
  Age: 21 Month
  Sex: Male

DRUGS (5)
  1. PREDNISOLONE [Suspect]
     Active Substance: PREDNISOLONE
     Indication: Nephrotic syndrome
     Dosage: UNK, PROLONGED ADMINISTRATION OF HIGH-DOSE PSL
     Route: 065
  2. CORTISONE [Suspect]
     Active Substance: CORTISONE
     Indication: Infection
     Dosage: UNK, STRESS DOSES
     Route: 065
  3. CORTISONE [Suspect]
     Active Substance: CORTISONE
     Indication: Adrenal insufficiency
  4. ENALAPRIL [Concomitant]
     Active Substance: ENALAPRIL
     Indication: Hypertension
     Dosage: UNK
     Route: 048
  5. ALBUMIN HUMAN [Concomitant]
     Active Substance: ALBUMIN HUMAN
     Indication: Oedema
     Dosage: UNK
     Route: 065

REACTIONS (3)
  - Multiple organ dysfunction syndrome [Fatal]
  - Necrotising colitis [Fatal]
  - Gastrointestinal infection [Fatal]
